FAERS Safety Report 5298692-0 (Version None)
Quarter: 2007Q2

REPORT INFORMATION
  Report Type: 
  Country: None (occurrence: None)
  Receive Date: 20070417
  Receipt Date: 20070405
  Transmission Date: 20071010
  Serious: Yes (Other)
  Sender: FDA-Public Use
  Company Number: PT-JNJFOC-20070402287

PATIENT
  Age: 48 Year
  Sex: Female

DRUGS (3)
  1. INFLIXIMAB [Suspect]
     Indication: PSORIATIC ARTHROPATHY
     Route: 042
  2. METHOTREXATE [Concomitant]
     Indication: PSORIATIC ARTHROPATHY
  3. ISONIAZID [Concomitant]
     Indication: TUBERCULOSIS
     Dosage: 9 MONTHS DURATION

REACTIONS (1)
  - PULMONARY TUBERCULOSIS [None]
